FAERS Safety Report 9543842 (Version 1)
Quarter: 2013Q3

REPORT INFORMATION
  Report Type: Spontaneous
  Country: CN (occurrence: CN)
  Receive Date: 20130923
  Receipt Date: 20130923
  Transmission Date: 20140515
  Serious: Yes (Other)
  Sender: FDA-Public Use
  Company Number: CN-PFIZER INC-2013268569

PATIENT
  Age: 41 Year
  Sex: Female

DRUGS (4)
  1. OXALIPLATIN [Suspect]
     Indication: BLADDER CANCER
  2. DOCETAXEL [Suspect]
     Indication: BLADDER CANCER
  3. CAPECITABINE [Suspect]
     Indication: BLADDER CANCER
  4. FLUOROURACIL [Concomitant]
     Indication: BLADDER CANCER

REACTIONS (1)
  - Bone marrow failure [Recovering/Resolving]
